FAERS Safety Report 4999413-9 (Version None)
Quarter: 2006Q2

REPORT INFORMATION
  Report Type: 
  Country: None (occurrence: None)
  Receive Date: 20060511
  Receipt Date: 20060502
  Transmission Date: 20061013
  Serious: Yes (Hospitalization)
  Sender: FDA-Public Use
  Company Number: GB-ROCHE-446907

PATIENT
  Age: 19 Year
  Sex: Female

DRUGS (2)
  1. LARIAM [Suspect]
     Indication: PROPHYLAXIS
     Route: 048
     Dates: start: 20060221, end: 20060221
  2. CILEST [Concomitant]
     Indication: CONTRACEPTION
     Route: 048
     Dates: start: 20040130

REACTIONS (6)
  - BLOOD PRESSURE DECREASED [None]
  - CHEST PAIN [None]
  - LOSS OF CONSCIOUSNESS [None]
  - MUSCULOSKELETAL STIFFNESS [None]
  - MYALGIA [None]
  - SYNCOPE [None]
